FAERS Safety Report 6077506-5 (Version None)
Quarter: 2009Q1

REPORT INFORMATION
  Report Type: 
  Country: None (occurrence: None)
  Receive Date: 20090213
  Receipt Date: 20090204
  Transmission Date: 20090719
  Serious: Yes (Hospitalization)
  Sender: FDA-Public Use
  Company Number: BE-ABBOTT-07P-013-0425147-00

PATIENT
  Sex: Male
  Weight: 92 kg

DRUGS (8)
  1. HUMIRA [Suspect]
     Indication: CROHN'S DISEASE
     Route: 058
     Dates: start: 20050730
  2. DAFALGAN [Concomitant]
     Indication: MALAISE
     Dates: start: 20040601
  3. VITAMIN B-12 [Concomitant]
     Indication: MEDICAL DIET
     Dates: start: 20030101
  4. IMODIUM [Concomitant]
     Indication: DIARRHOEA
     Dates: start: 20000501
  5. LIPITOR [Concomitant]
     Indication: HYPERCHOLESTEROLAEMIA
     Dates: start: 20040612
  6. NOCTAMID [Concomitant]
     Indication: INSOMNIA
     Dates: start: 20040712
  7. TRAMADOL HCL [Concomitant]
     Indication: MUSCLE SPASMS
     Dates: start: 20040712
  8. REVITALOSE [Concomitant]
     Indication: CROHN'S DISEASE
     Dosage: 1000MG/5ML
     Dates: start: 20030101

REACTIONS (1)
  - ABDOMINAL PAIN [None]
